FAERS Safety Report 7763363-5 (Version None)
Quarter: 2011Q3

REPORT INFORMATION
  Report Type: 
  Country: None (occurrence: None)
  Receive Date: 20110920
  Receipt Date: 20110908
  Transmission Date: 20111222
  Serious: Yes (Hospitalization, Other)
  Sender: FDA-Public Use
  Company Number: US-ELI_LILLY_AND_COMPANY-US201010003501

PATIENT
  Sex: Female

DRUGS (17)
  1. FORTEO [Suspect]
     Dosage: 20 UG, QD
     Route: 065
     Dates: end: 20110826
  2. RANITIDINE [Concomitant]
     Dosage: 300 MG, EACH EVENING
  3. PLAVIX [Concomitant]
     Dosage: 75 MG, QOD
  4. CYCLOBENZAPRINE [Concomitant]
     Dosage: 10 MG, BID
  5. OMEPRAZOLE [Concomitant]
     Dosage: 20 MG, QD
  6. FORTEO [Suspect]
     Dosage: 20 UG, QD
     Route: 065
  7. CIPROFLOXACIN [Concomitant]
     Dosage: 500 MG, BID
  8. PROAIR HFA [Concomitant]
  9. SPIRIVA [Concomitant]
  10. FORTEO [Suspect]
     Indication: OSTEOPOROSIS
     Dosage: 20 UG, DAILY (1/D)
     Route: 065
     Dates: start: 20100801
  11. FORTEO [Suspect]
     Dosage: 20 UG, QD
     Route: 065
  12. SYNTHROID [Concomitant]
     Dosage: 75 UG, QD
  13. FORTEO [Suspect]
     Dosage: 20 UG, DAILY (1/D)
     Route: 065
  14. ACCOLATE [Concomitant]
     Dosage: 20 MG, BID
  15. VITAMIN D [Concomitant]
     Dosage: 1000 IU, UNK
  16. NYSTATIN [Concomitant]
     Dosage: 30 G, PRN
  17. TRAMADOL                           /00599201/ [Concomitant]
     Dosage: UNK, PRN

REACTIONS (20)
  - INJECTION SITE ERYTHEMA [None]
  - SKIN ULCER [None]
  - WRIST FRACTURE [None]
  - WOUND COMPLICATION [None]
  - PURULENCE [None]
  - BUNION [None]
  - SKIN DISCOLOURATION [None]
  - FALL [None]
  - ASTHMA [None]
  - FOOT FRACTURE [None]
  - DRUG INEFFECTIVE [None]
  - OSTEOMYELITIS [None]
  - SOFT TISSUE DISORDER [None]
  - DIZZINESS [None]
  - BONE DISORDER [None]
  - ERYTHEMA [None]
  - AMNESIA [None]
  - CONTUSION [None]
  - OSTEOPOROSIS [None]
  - WOUND DRAINAGE [None]
